FAERS Safety Report 8247832-X (Version None)
Quarter: 2012Q1

REPORT INFORMATION
  Report Type: 
  Country: None (occurrence: None)
  Receive Date: 20120330
  Receipt Date: 20120323
  Transmission Date: 20120608
  Serious: Yes (Hospitalization)
  Sender: FDA-Public Use
  Company Number: US-ABBOTT-12P-163-0918643-00

PATIENT
  Sex: Female
  Weight: 52.664 kg

DRUGS (8)
  1. HUMIRA [Suspect]
     Route: 058
     Dates: start: 20120312
  2. PROZAC [Concomitant]
     Indication: MIGRAINE
  3. LEVOXYL [Concomitant]
     Indication: PRODUCT USED FOR UNKNOWN INDICATION
  4. PRILOSEC [Concomitant]
     Indication: PRODUCT USED FOR UNKNOWN INDICATION
  5. CYMBALTA [Concomitant]
     Indication: PRODUCT USED FOR UNKNOWN INDICATION
  6. FENTANYL [Concomitant]
     Indication: ARTHRALGIA
     Dosage: PATCH
  7. ENBREL [Suspect]
     Indication: RHEUMATOID ARTHRITIS
     Dates: start: 20111001, end: 20120101
  8. HUMIRA [Suspect]
     Indication: RHEUMATOID ARTHRITIS
     Route: 058
     Dates: start: 20120130, end: 20120214

REACTIONS (4)
  - DEPRESSION [None]
  - PNEUMONIA [None]
  - HYPOTENSION [None]
  - SEPSIS [None]
